FAERS Safety Report 4630268-8 (Version None)
Quarter: 2005Q2

REPORT INFORMATION
  Report Type: 
  Country: None (occurrence: None)
  Receive Date: 20050408
  Receipt Date: 20050203
  Transmission Date: 20051028
  Serious: Yes (Other)
  Sender: FDA-Public Use
  Company Number: PHFR2005GB00791

PATIENT
  Age: 17 Year
  Sex: Male

DRUGS (1)
  1. RITALIN [Suspect]
     Route: 048

REACTIONS (1)
  - CROHN'S DISEASE [None]
